FAERS Safety Report 8342235-1 (Version None)
Quarter: 2012Q2

REPORT INFORMATION
  Report Type: 
  Country: None (occurrence: None)
  Receive Date: 20120507
  Receipt Date: 20120424
  Transmission Date: 20120825
  Serious: Yes (Other)
  Sender: FDA-Public Use
  Company Number: CO-AMGEN-US434534

PATIENT
  Age: 78 Year
  Sex: Female

DRUGS (8)
  1. ALPRAZOLAM [Concomitant]
     Dosage: UNK
  2. VITAMIN D [Concomitant]
     Dosage: UNK
  3. ETANERCEPT [Suspect]
     Dosage: 50 MG, WEEKLY
     Route: 058
  4. CALCIUM [Concomitant]
     Dosage: UNK
  5. VERAPAMIL [Concomitant]
     Dosage: UNK
  6. TIROXINA [Concomitant]
     Dosage: UNK
  7. ETANERCEPT [Suspect]
     Indication: RHEUMATOID ARTHRITIS
     Dosage: 50 MG, QWK
     Route: 058
     Dates: start: 20090617
  8. FOLIC ACID [Concomitant]
     Dosage: UNK

REACTIONS (15)
  - FEELING COLD [None]
  - AMNESIA [None]
  - SKIN DISCOLOURATION [None]
  - NERVOUSNESS [None]
  - THYROIDITIS [None]
  - HIATUS HERNIA [None]
  - OSTEOPOROSIS [None]
  - HAEMOGLOBIN DECREASED [None]
  - CHONDROPATHY [None]
  - SKIN INFECTION [None]
  - TINEA PEDIS [None]
  - WEIGHT DECREASED [None]
  - BRONCHITIS [None]
  - RED BLOOD CELL COUNT DECREASED [None]
  - INFLUENZA [None]
